FAERS Safety Report 6128258-1 (Version None)
Quarter: 2009Q1

REPORT INFORMATION
  Report Type: 
  Country: None (occurrence: None)
  Receive Date: 20090319
  Receipt Date: 20090305
  Transmission Date: 20090719
  Serious: Yes (Death)
  Sender: FDA-Public Use
  Company Number: 1-17769222

PATIENT
  Age: 15 Year
  Sex: Female

DRUGS (1)
  1. DYNACIN [Suspect]
     Indication: ACNE
     Dosage: ORAL
     Route: 048

REACTIONS (16)
  - ACUTE RESPIRATORY DISTRESS SYNDROME [None]
  - CYTOMEGALOVIRUS TEST POSITIVE [None]
  - DISSEMINATED INTRAVASCULAR COAGULATION [None]
  - DRUG RASH WITH EOSINOPHILIA AND SYSTEMIC SYMPTOMS [None]
  - ENCEPHALITIS [None]
  - HEPATITIS [None]
  - HUMAN HERPES VIRUS 6 SEROLOGY POSITIVE [None]
  - HYPERTENSION [None]
  - MULTI-ORGAN FAILURE [None]
  - PNEUMONITIS [None]
  - PSEUDOMONAL SEPSIS [None]
  - RENAL FAILURE [None]
  - SHOCK [None]
  - SPUTUM CULTURE POSITIVE [None]
  - STAPHYLOCOCCAL SEPSIS [None]
  - THROMBOCYTOPENIA [None]
